FAERS Safety Report 25190890 (Version 1)
Quarter: 2025Q2

REPORT INFORMATION
  Report Type: Spontaneous
  Country: US (occurrence: US)
  Receive Date: 20250411
  Receipt Date: 20250411
  Transmission Date: 20250717
  Serious: No
  Sender: BIOMARIN
  Company Number: US-BIOMARINAP-US-2025-165176

PATIENT

DRUGS (2)
  1. VOXZOGO [Suspect]
     Active Substance: VOSORITIDE
     Indication: Osteochondrodysplasia
     Dosage: 0.40, UNK, QD
     Route: 058
     Dates: start: 20241006
  2. IRON [Concomitant]
     Active Substance: IRON
     Indication: Blood iron decreased
     Dates: start: 202503

REACTIONS (5)
  - Pallor [Unknown]
  - Vomiting [Unknown]
  - Lethargy [Unknown]
  - Blood iron decreased [Unknown]
  - Sleep disorder [Unknown]
